FAERS Safety Report 5065961-9 (Version None)
Quarter: 2006Q3

REPORT INFORMATION
  Report Type: 
  Country: None (occurrence: None)
  Receive Date: 20060731
  Receipt Date: 20060707
  Transmission Date: 20061208
  Serious: Yes (Hospitalization)
  Sender: FDA-Public Use
  Company Number: FR-BOEHRINGER INGELHEIM PHARMACEUTICALS, INC.-2006-BP-08725YA

PATIENT
  Age: 80 Year
  Sex: Male

DRUGS (4)
  1. OMIX (TAMSULOSIN HYDROCHLORIDE) [Suspect]
     Route: 048
     Dates: start: 20051201
  2. OMNIC OCAS ORODISPERSABLE CR [Suspect]
     Route: 065
     Dates: end: 20060706
  3. CORDARONE [Concomitant]
  4. TRIATEC [Concomitant]

REACTIONS (3)
  - FALL [None]
  - ORTHOSTATIC HYPOTENSION [None]
  - WRIST FRACTURE [None]
